FAERS Safety Report 5627032-X (Version None)
Quarter: 2008Q1

REPORT INFORMATION
  Report Type: 
  Country: None (occurrence: None)
  Receive Date: 20080117
  Receipt Date: 20070131
  Transmission Date: 20080703
  Serious: Yes (Hospitalization)
  Sender: FDA-Public Use
  Company Number: E2020-00948-SPO-US

PATIENT
  Age: 64 Year
  Sex: Female
  Weight: 66 kg

DRUGS (7)
  1. ARICEPT [Suspect]
     Indication: DEMENTIA
     Dosage: ORAL
     Route: 048
  2. ZOLOFT [Suspect]
     Indication: DEPRESSION
     Dosage: ORAL
     Route: 048
  3. NAMENDA [Suspect]
     Indication: DEMENTIA
     Dosage: ORAL
     Route: 048
  4. SYNTHROID [Concomitant]
  5. PLAVIX [Concomitant]
  6. ACTONEL [Concomitant]
  7. FIBER LAXATIVE (LAXATIVES) [Concomitant]

REACTIONS (1)
  - CONVULSION [None]
